FAERS Safety Report 5896097-2 (Version None)
Quarter: 2008Q3

REPORT INFORMATION
  Report Type: 
  Country: None (occurrence: None)
  Receive Date: 20080924
  Receipt Date: 20080923
  Transmission Date: 20090109
  Serious: Yes (Hospitalization)
  Sender: FDA-Public Use
  Company Number: US-BRISTOL-MYERS SQUIBB COMPANY-14329411

PATIENT
  Age: 81 Year
  Sex: Male
  Weight: 83 kg

DRUGS (8)
  1. ERBITUX [Suspect]
     Indication: RECTAL CANCER
     Dosage: THERAPY START 11-AUG-2008; INTERRUPTED ON 02-SEP-2008, THEN DOSE REDUCED. DISCONTINUED ON 15AUG08
     Dates: start: 20080825, end: 20080825
  2. FLUOROURACIL [Suspect]
     Indication: RECTAL CANCER
     Dosage: THERAPY STARTED 18-AUG-2008; INTERRUPTED ON 02-SEP-2008 AND DOSE REDUCED. DISCONTINUED ON 15AUG08
     Route: 042
     Dates: start: 20080825, end: 20080825
  3. RADIATION THERAPY [Concomitant]
     Indication: RECTAL CANCER
  4. CYMBALTA [Concomitant]
     Indication: DEPRESSION
  5. ASMANEX TWISTHALER [Concomitant]
     Dosage: 1 DF = 2 PUFFS OF 200 MICROGRAMS
     Route: 055
  6. SPIRIVA [Concomitant]
     Route: 055
  7. SIMVASTATIN [Concomitant]
  8. LISINOPRIL [Concomitant]

REACTIONS (3)
  - DEHYDRATION [None]
  - HYPOTENSION [None]
  - MUCOSAL INFLAMMATION [None]
